FAERS Safety Report 25988588 (Version 1)
Quarter: 2025Q4

REPORT INFORMATION
  Report Type: Spontaneous
  Country: BR (occurrence: BR)
  Receive Date: 20251103
  Receipt Date: 20251103
  Transmission Date: 20260118
  Serious: Yes (Other)
  Sender: Phathom Pharmaceuticals
  Company Number: BR-PHATHOM PHARMACEUTICALS INC.-2025PHT03179

PATIENT

DRUGS (1)
  1. VONOPRAZAN FUMARATE [Suspect]
     Active Substance: VONOPRAZAN FUMARATE
     Indication: Product used for unknown indication
     Dosage: 20 MG
     Route: 065

REACTIONS (3)
  - Oesophageal stenosis [Unknown]
  - Erosive oesophagitis [Unknown]
  - Wrong technique in product usage process [Unknown]
